FAERS Safety Report 14752912 (Version 1)
Quarter: 2020Q3

REPORT INFORMATION
  Report Type: Spontaneous
  Country: IT (occurrence: IT)
  Receive Date: 20180412
  Receipt Date: 20180412
  Transmission Date: 20201104
  Serious: Yes (Other)
  Sender: FDA-Public Use
  Company Number: IT-TEVA-2018-IT-878916

PATIENT
  Age: 53 Year
  Sex: Male

DRUGS (3)
  1. AMIKACIN. [Suspect]
     Active Substance: AMIKACIN
     Indication: NOCARDIOSIS
     Route: 042
     Dates: start: 20171120, end: 20171221
  2. COTRIMOXAZOLE [Suspect]
     Active Substance: SULFAMETHOXAZOLE\TRIMETHOPRIM
     Indication: NOCARDIOSIS
     Route: 042
     Dates: start: 20171028, end: 20180102
  3. LINEZOLID. [Concomitant]
     Active Substance: LINEZOLID
     Indication: NOCARDIOSIS
     Route: 042
     Dates: start: 20171221, end: 20180102

REACTIONS (2)
  - Metabolic acidosis [Recovering/Resolving]
  - Acute kidney injury [Recovering/Resolving]

NARRATIVE: CASE EVENT DATE: 20171221
